FAERS Safety Report 5918804-2 (Version None)
Quarter: 2008Q4

REPORT INFORMATION
  Report Type: 
  Country: None (occurrence: None)
  Receive Date: 20081015
  Receipt Date: 20081001
  Transmission Date: 20090506
  Serious: Yes (Hospitalization)
  Sender: FDA-Public Use
  Company Number: US-AMGEN-QUU305871

PATIENT
  Sex: Female

DRUGS (10)
  1. ENBREL [Suspect]
     Indication: RHEUMATOID ARTHRITIS
     Route: 058
     Dates: start: 20060622
  2. METHOTREXATE SODIUM [Concomitant]
  3. FOLIC ACID [Concomitant]
  4. ALPRAZOLAM [Concomitant]
  5. BUSPAR [Concomitant]
  6. ZOLPIDEM [Concomitant]
  7. PREDNISONE [Concomitant]
  8. AMLODIPINE [Concomitant]
  9. TYLENOL (CAPLET) [Concomitant]
  10. DARVOCET-N 100 [Concomitant]

REACTIONS (15)
  - ANAEMIA OF CHRONIC DISEASE [None]
  - ANXIETY [None]
  - BACK PAIN [None]
  - BRONCHITIS [None]
  - CARDIAC FAILURE CONGESTIVE [None]
  - CARDIOMEGALY [None]
  - FATIGUE [None]
  - GASTROOESOPHAGEAL REFLUX DISEASE [None]
  - HYPERTENSION [None]
  - IMMUNOSUPPRESSION [None]
  - INTERSTITIAL LUNG DISEASE [None]
  - LOSS OF CONSCIOUSNESS [None]
  - PLEURAL EFFUSION [None]
  - PNEUMONIA [None]
  - SCOLIOSIS [None]
